FAERS Safety Report 7622873-1 (Version None)
Quarter: 2011Q3

REPORT INFORMATION
  Report Type: 
  Country: None (occurrence: None)
  Receive Date: 20110720
  Receipt Date: 20110707
  Transmission Date: 20111222
  Serious: Yes (Hospitalization)
  Sender: FDA-Public Use
  Company Number: US-ELI_LILLY_AND_COMPANY-US201106005594

PATIENT
  Sex: Male
  Weight: 85.261 kg

DRUGS (6)
  1. OLANZAPINE [Suspect]
     Dosage: UNK
     Route: 030
     Dates: start: 20110518
  2. OLANZAPINE [Suspect]
     Dosage: UNK
     Route: 030
     Dates: start: 20110602
  3. OLANZAPINE [Suspect]
     Dosage: UNK
     Route: 030
     Dates: start: 20110504
  4. OLANZAPINE [Suspect]
     Dosage: UNK
     Route: 030
     Dates: start: 20110616
  5. OLANZAPINE [Suspect]
     Indication: SCHIZOPHRENIA
     Dosage: UNK
     Route: 030
     Dates: start: 20110420
  6. OLANZAPINE [Suspect]
     Dosage: 300 MG, UNK
     Dates: start: 20110714

REACTIONS (11)
  - ATAXIA [None]
  - DIZZINESS [None]
  - BALANCE DISORDER [None]
  - ANXIETY [None]
  - DYSARTHRIA [None]
  - CONFUSIONAL STATE [None]
  - HYPERTENSION [None]
  - RESTLESS LEGS SYNDROME [None]
  - MOVEMENT DISORDER [None]
  - AGITATION [None]
  - TACHYCARDIA [None]
